FAERS Safety Report 4939197-3 (Version None)
Quarter: 2006Q1

REPORT INFORMATION
  Report Type: 
  Country: None (occurrence: None)
  Receive Date: 20060310
  Receipt Date: 20060306
  Transmission Date: 20060701
  Serious: Yes (Life-Threatening)
  Sender: FDA-Public Use
  Company Number: CO-BOEHRINGER INGELHEIM PHARMACEUTICALS, INC.-2006-BP-02520CL

PATIENT
  Age: 85 Year
  Sex: Male

DRUGS (1)
  1. SECOTEX CAPSULES [Suspect]
     Indication: BENIGN PROSTATIC HYPERPLASIA
     Route: 048
     Dates: start: 20051108, end: 20051114

REACTIONS (5)
  - NAUSEA [None]
  - ORTHOSTATIC HYPOTENSION [None]
  - PALLOR [None]
  - SEDATION [None]
  - SYNCOPE [None]
